FAERS Safety Report 6445131-X (Version None)
Quarter: 2009Q4

REPORT INFORMATION
  Report Type: 
  Country: None (occurrence: None)
  Receive Date: 20091118
  Receipt Date: 20091109
  Transmission Date: 20100525
  Serious: Yes (Disabling)
  Sender: FDA-Public Use
  Company Number: JP-B.I. PHARMACEUTICALS,INC./RIDGEFIELD-2009-BP-13085NB

PATIENT
  Age: 70 Year
  Sex: Male

DRUGS (4)
  1. BI-SIFROL TABLETS [Suspect]
     Indication: PARKINSON'S DISEASE
     Dosage: 1.5 MG
     Route: 048
     Dates: start: 20070423, end: 20090309
  2. MENESIT [Concomitant]
     Indication: PARKINSON'S DISEASE
     Dosage: 400 MG
     Route: 048
     Dates: start: 20050725
  3. TRIHEXYPHENIDYL HCL [Concomitant]
     Indication: PARKINSON'S DISEASE
     Dosage: 2 MG
     Route: 048
     Dates: start: 20050926
  4. SENNOSIDE [Concomitant]
     Indication: CONSTIPATION
     Dosage: 12 MG
     Route: 048
     Dates: start: 20070625

REACTIONS (1)
  - POSTURE ABNORMAL [None]
